FAERS Safety Report 9745749 (Version 2)
Quarter: 2014Q2

REPORT INFORMATION
  Report Type: Spontaneous
  Country: US (occurrence: US)
  Receive Date: 20131211
  Receipt Date: 20140407
  Transmission Date: 20141212
  Serious: Yes (Hospitalization)
  Sender: FDA-Public Use
  Company Number: US-BAYER-2013-147916

PATIENT
  Age: 31 Year
  Sex: Female
  Weight: 90.7 kg

DRUGS (4)
  1. MIRENA [Suspect]
     Indication: CONTRACEPTION
     Dosage: 20 MCG/24HR, CONT
     Route: 015
     Dates: start: 20120105, end: 20120927
  2. HYDROCHLOROTHIAZIDE [Concomitant]
     Indication: ESSENTIAL HYPERTENSION
  3. TERAZOL [Concomitant]
  4. SAFYRAL [Concomitant]

REACTIONS (6)
  - Uterine perforation [None]
  - Device dislocation [None]
  - Device difficult to use [None]
  - Pelvic pain [None]
  - Injury [None]
  - Emotional distress [None]
